FAERS Safety Report 22238755 (Version 1)
Quarter: 2023Q2

REPORT INFORMATION
  Report Type: Spontaneous
  Country: US (occurrence: None)
  Receive Date: 20230420
  Receipt Date: 20230420
  Transmission Date: 20230722
  Serious: Yes (Other)
  Sender: FDA-Public Use
  Company Number: None

PATIENT
  Age: 28 Year
  Sex: Male
  Weight: 85.95 kg

DRUGS (4)
  1. EMGALITY [Suspect]
     Active Substance: GALCANEZUMAB-GNLM
     Indication: Migraine
     Dosage: FREQUENCY : MONTHLY;?
     Route: 058
     Dates: start: 20230124
  2. RIZATRIPTAN [Concomitant]
     Active Substance: RIZATRIPTAN
  3. ALBUTEROL [Concomitant]
     Active Substance: ALBUTEROL
  4. IBUPROFEN [Concomitant]
     Active Substance: IBUPROFEN

REACTIONS (4)
  - Injection site swelling [None]
  - Injection site pruritus [None]
  - Injection site erythema [None]
  - Rash papular [None]
